FAERS Safety Report 7047063-5 (Version None)
Quarter: 2010Q4

REPORT INFORMATION
  Report Type: 
  Country: None (occurrence: None)
  Receive Date: 20101015
  Receipt Date: 20101008
  Transmission Date: 20110411
  Serious: Yes (Other)
  Sender: FDA-Public Use
  Company Number: US-JNJFOC-20101002827

PATIENT
  Sex: Female
  Weight: 96.62 kg

DRUGS (3)
  1. LEVAQUIN [Suspect]
     Indication: SINUSITIS
     Route: 048
  2. PREDNISONE [Concomitant]
     Indication: EUSTACHIAN TUBE DISORDER
     Route: 048
  3. EFFEXOR [Concomitant]
     Indication: DEPRESSION
     Route: 048

REACTIONS (3)
  - EAR PAIN [None]
  - NAIL DISCOLOURATION [None]
  - SKIN DISCOLOURATION [None]
